FAERS Safety Report 8699616 (Version 2)
Quarter: 2012Q4

REPORT INFORMATION
  Report Type: 
  Country: US (occurrence: US)
  Receive Date: 20120802
  Receipt Date: 20120904
  Transmission Date: 20130627
  Serious: Yes (Death, Life-Threatening, Hospitalization, Other)
  Sender: FDA-Public Use
  Company Number: US-ELI_LILLY_AND_COMPANY-US201207009329

PATIENT
  Age: 48 Year
  Sex: Female
  Weight: 78.01 kg

DRUGS (2)
  1. EFFIENT [Suspect]
     Indication: MYOCARDIAL INFARCTION
     Dosage: 10 mg, qd
     Route: 065
     Dates: start: 20120411
  2. ASPIRIN [Concomitant]

REACTIONS (2)
  - Subarachnoid haemorrhage [Fatal]
  - Intracranial aneurysm [Not Recovered/Not Resolved]
